FAERS Safety Report 8934199 (Version 1)
Quarter: 2012Q4

REPORT INFORMATION
  Report Type: 
  Country: US (occurrence: US)
  Receive Date: 20121129
  Receipt Date: 20121129
  Transmission Date: 20130627
  Serious: Yes (Death, Hospitalization)
  Sender: FDA-Public Use
  Company Number: US-MUTUAL PHARMACEUTICAL COMPANY, INC.-TMDL20120006

PATIENT
  Age: 65 Year
  Sex: Female

DRUGS (4)
  1. TRAMADOL [Suspect]
     Indication: DRUG USE FOR UNKNOWN INDICATION
     Route: 065
     Dates: end: 2012
  2. COLCRYS [Suspect]
     Indication: PSEUDOGOUT
     Route: 065
     Dates: end: 2012
  3. CYMBALTA [Concomitant]
     Indication: DEPRESSION
     Route: 065
     Dates: end: 2012
  4. LYRICA [Concomitant]
     Indication: DRUG USE FOR UNKNOWN INDICATION
     Route: 065
     Dates: end: 2012

REACTIONS (6)
  - Sleep apnoea syndrome [None]
  - Overdose [Unknown]
  - Mental disorder [Unknown]
  - Fall [None]
  - Haemorrhage [Unknown]
  - Head injury [None]
